FAERS Safety Report 9017136 (Version 1)
Quarter: 2013Q1

REPORT INFORMATION
  Report Type: Spontaneous
  Country: US (occurrence: US)
  Receive Date: 20130117
  Receipt Date: 20130117
  Transmission Date: 20140127
  Serious: Yes (Death)
  Sender: FDA-Public Use
  Company Number: US-ELI_LILLY_AND_COMPANY-US201301005138

PATIENT
  Age: 63 Year
  Sex: Male

DRUGS (1)
  1. GEMZAR [Suspect]
     Indication: BLADDER CANCER
     Dosage: UNK
     Dates: start: 20120212, end: 20120308

REACTIONS (1)
  - Malignant neoplasm progression [Fatal]
